FAERS Safety Report 18170796 (Version 1)
Quarter: 2020Q3

REPORT INFORMATION
  Report Type: Spontaneous
  Country: KR (occurrence: KR)
  Receive Date: 20200819
  Receipt Date: 20200819
  Transmission Date: 20201103
  Serious: Yes (Death)
  Sender: FDA-Public Use
  Company Number: KR-EPIC PHARMA LLC-2020EPC00244

PATIENT

DRUGS (1)
  1. MEPERIDINE [Suspect]
     Active Substance: MEPERIDINE
     Indication: LABOUR PAIN
     Dosage: ^25 MG AT INTERVALS OF MORE THAN TWO HOURS^ TO MOTHER
     Route: 064
     Dates: start: 2004

REACTIONS (2)
  - Foetal distress syndrome [Fatal]
  - Product prescribing issue [Fatal]

NARRATIVE: CASE EVENT DATE: 2004
